FAERS Safety Report 5128026-3 (Version None)
Quarter: 2006Q4

REPORT INFORMATION
  Report Type: 
  Country: None (occurrence: None)
  Receive Date: 20061013
  Receipt Date: 20061013
  Transmission Date: 20070319
  Serious: Yes (Other)
  Sender: FDA-Public Use
  Company Number: None

PATIENT
  Age: 16 Year
  Sex: Female
  Weight: 50.8029 kg

DRUGS (1)
  1. CLARAVIS [Suspect]
     Indication: ACNE
     Dosage: 60MG DAILY
     Dates: start: 20060707, end: 20061005

REACTIONS (7)
  - ALTERED VISUAL DEPTH PERCEPTION [None]
  - CHAPPED LIPS [None]
  - OCULAR HYPERAEMIA [None]
  - PELVIC PAIN [None]
  - ROAD TRAFFIC ACCIDENT [None]
  - SWELLING FACE [None]
  - VISUAL FIELD DEFECT [None]
